FAERS Safety Report 9813648 (Version 1)
Quarter: 2014Q1

REPORT INFORMATION
  Report Type: Spontaneous
  Country: US (occurrence: US)
  Receive Date: 20140113
  Receipt Date: 20140113
  Transmission Date: 20141002
  Serious: Yes (Other)
  Sender: FDA-Public Use
  Company Number: US-UCBSA-108162

PATIENT
  Age: 52 Year
  Sex: Female
  Weight: 84.6 kg

DRUGS (10)
  1. CIMZIA [Suspect]
     Dosage: UNKNOWN DOSE
     Dates: start: 201208, end: 201311
  2. HUMIRA [Suspect]
     Indication: RHEUMATOID ARTHRITIS
     Dosage: UNKNOWN FREQUENCY
     Dates: start: 2011, end: 201208
  3. HUMIRA [Suspect]
     Indication: RHEUMATOID ARTHRITIS
     Dosage: UNKNOWN DOSE
     Dates: start: 201311
  4. PREDNISONE [Concomitant]
     Indication: RHEUMATOID ARTHRITIS
     Dosage: UNKNOWN DOSE
  5. CAROIZEM LA [Concomitant]
     Indication: HEART RATE IRREGULAR
     Dosage: UNKNOWN DOSE
  6. PREMARIN [Concomitant]
     Indication: HORMONE REPLACEMENT THERAPY
     Dosage: UNKNOWN DOSE
  7. TRAMADOL [Concomitant]
     Indication: RHEUMATOID ARTHRITIS
     Dosage: UNKNOWN DOSE
  8. CALCIUM D3 [Concomitant]
     Indication: VITAMIN SUPPLEMENTATION
     Dosage: UNKNOWN DOSE
  9. MULTIPLE VITAMIN [Concomitant]
     Indication: VITAMIN SUPPLEMENTATION
     Dosage: UNKNOWN DOSE
  10. CIPRO [Concomitant]
     Indication: PROPHYLAXIS
     Dosage: UNKNOWN DOSE

REACTIONS (6)
  - Nephrolithiasis [Unknown]
  - Sinusitis [Recovered/Resolved]
  - Upper respiratory tract infection [Recovered/Resolved]
  - Urinary tract infection [Recovered/Resolved]
  - Cystitis [Recovered/Resolved]
  - Drug ineffective [Recovered/Resolved]
